FAERS Safety Report 9138085 (Version 3)
Quarter: 2013Q4

REPORT INFORMATION
  Report Type: Spontaneous
  Country: FR (occurrence: FR)
  Receive Date: 20130304
  Receipt Date: 20131223
  Transmission Date: 20140711
  Serious: Yes (Other)
  Sender: FDA-Public Use
  Company Number: FR-NICOBRDEVP-2013-03563

PATIENT
  Age: 40 Year
  Sex: Male

DRUGS (6)
  1. SERTRALINE HYDROCHLORIDE (UNKNOWN) [Suspect]
     Indication: PRODUCT USED FOR UNKNOWN INDICATION
     Dosage: UNK, 1 DOSE DAILY
     Route: 048
     Dates: start: 201012
  2. BACLOFEN (WATSON LABORATORIES) [Suspect]
     Indication: PRODUCT USED FOR UNKNOWN INDICATION
     Dosage: 120 MG, DAILY
     Route: 048
     Dates: start: 201010
  3. SORIATANE [Suspect]
     Indication: DERMATOSIS
     Dosage: UNK UNK, UNKNOWN
     Route: 048
     Dates: start: 20110815, end: 20111213
  4. DANTRIUM [Suspect]
     Indication: PRODUCT USED FOR UNKNOWN INDICATION
     Dosage: 300 MG, DAILY
     Route: 048
     Dates: start: 201010, end: 20120215
  5. CERIS [Suspect]
     Indication: PRODUCT USED FOR UNKNOWN INDICATION
     Dosage: 40 MG, DAILY
     Route: 048
     Dates: start: 201010
  6. CURACNE [Suspect]
     Indication: ACNE
     Dosage: 20-30 MG, DAILY
     Route: 048
     Dates: start: 20111213

REACTIONS (3)
  - Acne [Recovering/Resolving]
  - Acne [Recovering/Resolving]
  - Muscle spasms [Recovering/Resolving]
